FAERS Safety Report 7941474-9 (Version None)
Quarter: 2011Q4

REPORT INFORMATION
  Report Type: 
  Country: None (occurrence: None)
  Receive Date: 20111122
  Receipt Date: 20111108
  Transmission Date: 20120403
  Serious: Yes (Other)
  Sender: FDA-Public Use
  Company Number: 1000025097

PATIENT
  Age: 83 Year
  Sex: Female

DRUGS (9)
  1. DEPAS (ETIZOLAM) [Suspect]
     Indication: NEUROSIS
     Dosage: 1 MG (0.5 MG, 2 IN 1 D), ORAL
     Route: 048
  2. MEMANTINE HYDROCHLORIDE [Suspect]
     Indication: DEMENTIA ALZHEIMER'S TYPE
     Dosage: 20 MG (20 MG, 1 IN 1 D), ORAL
     Route: 048
     Dates: start: 20110907, end: 20111021
  3. MEMANTINE HYDROCHLORIDE [Suspect]
     Indication: DEMENTIA ALZHEIMER'S TYPE
     Dosage: 5 MG (5 MG, 1 IN 1 D), ORAL
     Route: 048
     Dates: start: 20110816, end: 20110101
  4. FAMOTIDINE OD (FAMOTIDINE) (FAMOTIDINE) [Concomitant]
  5. MEVARICH (PRAVASTATIN SODIUM) (PRAVASTATIN SODIUM) [Concomitant]
  6. AMLODIPINE [Suspect]
     Indication: HYPERTENSION
     Dosage: 5 MG (5 MG, 1 IN 1 D), ORAL
     Route: 048
  7. TENORMIN [Suspect]
     Indication: HYPERTENSION
     Dosage: 12.5 MG (12. 5 MG, 1 IN 1 D), ORAL
     Route: 048
  8. ARICEPT D (DONEPEZIL HYDROCHLORIDE) (TABLETS) (DONEPEZIL HYDROCHLORIDE [Concomitant]
  9. RIKUNSHI-T (UNSPECIFIED HERBAL) (UNSPECIFIED HERBAL) [Concomitant]

REACTIONS (4)
  - CONTUSION [None]
  - SUBDURAL HAEMATOMA [None]
  - DIZZINESS [None]
  - FALL [None]
